FAERS Safety Report 10248497 (Version 1)
Quarter: 2014Q2

REPORT INFORMATION
  Report Type: Spontaneous
  Country: TR (occurrence: TR)
  Receive Date: 20140620
  Receipt Date: 20140620
  Transmission Date: 20141212
  Serious: Yes (Hospitalization)
  Sender: FDA-Public Use
  Company Number: TR-MERCK-1406TUR009363

PATIENT
  Age: 60 Year
  Sex: Female

DRUGS (2)
  1. MONTELUKAST SODIUM [Suspect]
     Indication: ASTHMA
     Dosage: 10 MG/DAY
     Route: 048
  2. BECLOMETHASONE DIPROPIONATE (+) FORMOTEROL FUMARATE [Concomitant]
     Indication: ASTHMA
     Dosage: UNK, BID
     Route: 055

REACTIONS (1)
  - Drug-induced liver injury [Recovered/Resolved]
